FAERS Safety Report 7811509-2 (Version None)
Quarter: 2011Q4

REPORT INFORMATION
  Report Type: 
  Country: None (occurrence: None)
  Receive Date: 20111013
  Receipt Date: 20111013
  Transmission Date: 20120403
  Serious: Yes (Hospitalization)
  Sender: FDA-Public Use
  Company Number: None

PATIENT
  Age: 96 Year
  Sex: Female
  Weight: 51.8 kg

DRUGS (1)
  1. AZITHROMYCIN [Suspect]
     Indication: PNEUMONIA
     Dosage: 500 MG
     Route: 048
     Dates: start: 20111009, end: 20111012

REACTIONS (3)
  - DRUG HYPERSENSITIVITY [None]
  - RASH GENERALISED [None]
  - PRURITUS [None]
